FAERS Safety Report 20387705 (Version 1)
Quarter: 2022Q1

REPORT INFORMATION
  Report Type: Spontaneous
  Country: US (occurrence: US)
  Receive Date: 20220127
  Receipt Date: 20220127
  Transmission Date: 20220423
  Serious: No
  Sender: FDA-Public Use
  Company Number: US-ALLERGAN-2117064US

PATIENT
  Sex: Female

DRUGS (2)
  1. BOTOX COSMETIC [Interacting]
     Active Substance: ONABOTULINUMTOXINA
     Indication: Skin wrinkling
     Dosage: UNK UNK, SINGLE, 5 MONTHS AGO
  2. ELAVIL [Interacting]
     Active Substance: AMITRIPTYLINE HYDROCHLORIDE
     Indication: Product used for unknown indication

REACTIONS (3)
  - Drug interaction [Unknown]
  - Dry eye [Not Recovered/Not Resolved]
  - Vision blurred [Not Recovered/Not Resolved]
